FAERS Safety Report 16806814 (Version 1)
Quarter: 2019Q3

REPORT INFORMATION
  Report Type: Report from Study
  Country: US (occurrence: US)
  Receive Date: 20190913
  Receipt Date: 20190913
  Transmission Date: 20191005
  Serious: Yes (Hospitalization, Other)
  Sender: FDA-Public Use
  Company Number: US-ASTRAZENECA-2018SE94177

PATIENT
  Sex: Female

DRUGS (10)
  1. LYNPARZA [Suspect]
     Active Substance: OLAPARIB
     Indication: OVARIAN CANCER STAGE IV
     Route: 048
  2. LYNPARZA [Suspect]
     Active Substance: OLAPARIB
     Indication: OVARIAN CANCER STAGE IV
     Route: 048
     Dates: start: 201807
  3. LORAZEPAM. [Concomitant]
     Active Substance: LORAZEPAM
     Indication: SLEEP DISORDER
  4. LYNPARZA [Suspect]
     Active Substance: OLAPARIB
     Indication: OVARIAN CANCER STAGE IV
     Route: 048
     Dates: start: 20180712
  5. CYMBALTA [Concomitant]
     Active Substance: DULOXETINE HYDROCHLORIDE
     Indication: NEURALGIA
     Dates: start: 20180726
  6. LYNPARZA [Suspect]
     Active Substance: OLAPARIB
     Indication: MALIGNANT NEOPLASM OF UTERINE ADNEXA
     Route: 048
     Dates: start: 20180712
  7. CYMBALTA [Concomitant]
     Active Substance: DULOXETINE HYDROCHLORIDE
     Indication: NEURALGIA
  8. VANCOMYCIN [Suspect]
     Active Substance: VANCOMYCIN
     Route: 065
  9. LYNPARZA [Suspect]
     Active Substance: OLAPARIB
     Indication: MALIGNANT NEOPLASM OF UTERINE ADNEXA
     Route: 048
  10. LYNPARZA [Suspect]
     Active Substance: OLAPARIB
     Indication: MALIGNANT NEOPLASM OF UTERINE ADNEXA
     Route: 048
     Dates: start: 201807

REACTIONS (33)
  - Cellulitis [Unknown]
  - Sleep disorder [Unknown]
  - Constipation [Not Recovered/Not Resolved]
  - Blood magnesium decreased [Not Recovered/Not Resolved]
  - Platelet count decreased [Not Recovered/Not Resolved]
  - Dyspnoea exertional [Recovered/Resolved]
  - Dizziness [Recovered/Resolved]
  - Tinnitus [Unknown]
  - Night sweats [Recovered/Resolved]
  - Hypotension [Recovered/Resolved]
  - Tissue injury [Not Recovered/Not Resolved]
  - Rectal haemorrhage [Not Recovered/Not Resolved]
  - Bacteraemia [Unknown]
  - Fatigue [Not Recovered/Not Resolved]
  - Feeling cold [Recovered/Resolved]
  - Chills [Unknown]
  - Ototoxicity [Unknown]
  - Hot flush [Unknown]
  - Arthralgia [Not Recovered/Not Resolved]
  - Immunodeficiency [Unknown]
  - Abdominal pain upper [Not Recovered/Not Resolved]
  - Anxiety [Unknown]
  - Pyrexia [Not Recovered/Not Resolved]
  - Off label use [Unknown]
  - Hypoacusis [Unknown]
  - Nervousness [Recovered/Resolved]
  - Restlessness [Not Recovered/Not Resolved]
  - Palpitations [Recovered/Resolved]
  - Product use in unapproved indication [Unknown]
  - Abscess limb [Unknown]
  - Nausea [Not Recovered/Not Resolved]
  - Malaise [Not Recovered/Not Resolved]
  - Pain [Not Recovered/Not Resolved]
